FAERS Safety Report 25322484 (Version 3)
Quarter: 2025Q3

REPORT INFORMATION
  Report Type: Spontaneous
  Country: US (occurrence: US)
  Receive Date: 20250516
  Receipt Date: 20250806
  Transmission Date: 20251020
  Serious: No
  Sender: DR REDDYS
  Company Number: US-DRL-USA-USA/2025/05/006682

PATIENT
  Age: 84 Year
  Sex: Male
  Weight: 68.03 kg

DRUGS (3)
  1. CLONIDINE TRANSDERMAL SYSTEM USP, 0.3 MG/DAY [Suspect]
     Active Substance: CLONIDINE
     Indication: Hypertension
     Route: 062
  2. CLONIDINE TRANSDERMAL SYSTEM USP, 0.3 MG/DAY [Suspect]
     Active Substance: CLONIDINE
     Dosage: SERIAL NUMBER-ANWU95AZR07J FOR THE 1ST BOX AND 1SD1Y8AWJ3WR FOR THE 2ND BOX.
     Route: 062
     Dates: start: 202504
  3. CLONIDINE TRANSDERMAL SYSTEM USP, 0.3 MG/DAY [Suspect]
     Active Substance: CLONIDINE
     Route: 062
     Dates: start: 202504

REACTIONS (2)
  - Underdose [Unknown]
  - Product physical issue [Unknown]

NARRATIVE: CASE EVENT DATE: 20250401
